FAERS Safety Report 6710373-2 (Version None)
Quarter: 2010Q2

REPORT INFORMATION
  Report Type: 
  Country: None (occurrence: None)
  Receive Date: 20100504
  Receipt Date: 20100422
  Transmission Date: 20101027
  Serious: No
  Sender: FDA-Public Use
  Company Number: US-B.I. PHARMACEUTICALS,INC./RIDGEFIELD-2010-BP-04703BP

PATIENT
  Sex: Male

DRUGS (2)
  1. COMBIVENT [Suspect]
     Indication: ASTHMA
     Route: 055
     Dates: start: 20100417, end: 20100420
  2. ALBUTEROL [Concomitant]
     Indication: ASTHMA

REACTIONS (4)
  - CHOKING [None]
  - COUGH [None]
  - DYSPNOEA [None]
  - RETCHING [None]
